FAERS Safety Report 14869855 (Version 2)
Quarter: 2018Q2

REPORT INFORMATION
  Report Type: Report from Study
  Country: ES (occurrence: ES)
  Receive Date: 20180509
  Receipt Date: 20180516
  Transmission Date: 20180711
  Serious: Yes (Hospitalization)
  Sender: FDA-Public Use
  Company Number: ES-PFIZER INC-2018187859

PATIENT
  Age: 87 Year
  Sex: Male

DRUGS (10)
  1. MIRABEGRON [Suspect]
     Active Substance: MIRABEGRON
     Dosage: 1 DF, QD, DRUG INTERVAL DOSAGE UNIT NUMBER:1 DAY
     Route: 065
  2. LATANOPROST. [Suspect]
     Active Substance: LATANOPROST
     Dosage: 2 GTT, QD, DRUG INTERVAL DOSAGE UNIT NUMBER:1 DAY
     Route: 065
  3. FLUOXETINE [Suspect]
     Active Substance: FLUOXETINE HYDROCHLORIDE
     Dosage: 20 MG, QD, DRUG INTERVAL DOSAGE UNIT NUMBER:1 DAY
     Route: 065
  4. QUETIAPINA /01270901/ [Suspect]
     Active Substance: QUETIAPINE
     Dosage: 25 MG, TID (2-2-1), DRUG INTERVAL DOSAGE UNIT NUMBER:1 DAY
     Route: 065
  5. BUDESONIDE. [Suspect]
     Active Substance: BUDESONIDE
     Dosage: 1 DF, BID, DRUG INTERVAL DOSAGE UNIT NUMBER:1 DAY
     Route: 045
  6. FUROSEMIDA /00032601/ [Suspect]
     Active Substance: FUROSEMIDE
     Dosage: 40 MG, QD, DRUG INTERVAL DOSAGE UNIT NUMBER:1 DAY
     Route: 065
  7. APIXABAN [Suspect]
     Active Substance: APIXABAN
     Dosage: 2.5 MG, BID, DRUG INTERVAL DOSAGE UNIT NUMBER:1 DAY
     Route: 065
  8. FENTANYL. [Suspect]
     Active Substance: FENTANYL
     Indication: DYSPNOEA
     Dosage: UNK
     Route: 048
  9. IPRATROPIUM/ALBUTEROL [Suspect]
     Active Substance: ALBUTEROL\IPRATROPIUM
     Dosage: 1 DF, Q6H, DRUG INTERVAL DOSAGE UNIT NUMBER:6HOUR
     Route: 045
  10. VILDAGLIPTIN [Suspect]
     Active Substance: VILDAGLIPTIN
     Dosage: 1 DF, QD, DRUG INTERVAL DOSAGE UNIT NUMBER:1 DAY
     Route: 065

REACTIONS (7)
  - Bone marrow oedema [Unknown]
  - White blood cell count abnormal [Unknown]
  - Heart rate abnormal [Unknown]
  - C-reactive protein abnormal [Unknown]
  - Haemoglobin abnormal [Unknown]
  - Blood pressure abnormal [Unknown]
  - Tachypnoea [Unknown]
